FAERS Safety Report 5003258-3 (Version None)
Quarter: 2006Q2

REPORT INFORMATION
  Report Type: 
  Country: None (occurrence: None)
  Receive Date: 20060516
  Receipt Date: 20060505
  Transmission Date: 20061013
  Serious: Yes (Hospitalization)
  Sender: FDA-Public Use
  Company Number: US-AVENTIS-200614227US

PATIENT
  Age: 64 Year
  Sex: Male

DRUGS (5)
  1. LANTUS [Suspect]
  2. LANTUS [Suspect]
  3. OPTICLIK (INSULIN INJECTION PEN) [Suspect]
  4. OXYGEN THERAPY [Concomitant]
     Dosage: DOSE: UNK
  5. UNKNOWN DRUG [Concomitant]

REACTIONS (3)
  - ATRIAL FIBRILLATION [None]
  - DIABETES MELLITUS [None]
  - PNEUMONIA [None]
